FAERS Safety Report 4894114-X (Version None)
Quarter: 2006Q1

REPORT INFORMATION
  Report Type: 
  Country: None (occurrence: None)
  Receive Date: 20060127
  Receipt Date: 20050803
  Transmission Date: 20060701
  Serious: No
  Sender: FDA-Public Use
  Company Number: US-GLAXOSMITHKLINE-A0568832A

PATIENT
  Age: 60 Year
  Sex: Female

DRUGS (6)
  1. WELLBUTRIN [Suspect]
     Indication: DEPRESSION
     Dosage: 350MG PER DAY
     Route: 048
     Dates: start: 20050701
  2. PREMARIN [Concomitant]
  3. ESTRATEST [Concomitant]
  4. PROGESTERONE [Concomitant]
  5. AMBIEN [Concomitant]
  6. ECOTRIN [Concomitant]

REACTIONS (1)
  - DRUG INEFFECTIVE [None]
